FAERS Safety Report 25034589 (Version 1)
Quarter: 2025Q1

REPORT INFORMATION
  Report Type: Spontaneous
  Country: US (occurrence: US)
  Receive Date: 20250304
  Receipt Date: 20250304
  Transmission Date: 20250409
  Serious: No
  Sender: CELLTRION
  Company Number: US-CELLTRION INC.-2024US032521

PATIENT

DRUGS (11)
  1. YUFLYMA [Suspect]
     Active Substance: ADALIMUMAB-AATY
     Indication: Product used for unknown indication
     Dosage: INJECT SUBCUTANEOUSLY, GEVE EVERY 2 WEEKS
     Route: 058
     Dates: start: 20241217
  2. MOUNJARO [Concomitant]
     Active Substance: TIRZEPATIDE
  3. METFORMIN [Concomitant]
     Active Substance: METFORMIN HYDROCHLORIDE
  4. LOSARTAN [Concomitant]
     Active Substance: LOSARTAN
  5. CARVEDILOL [Concomitant]
     Active Substance: CARVEDILOL
  6. ELIQUIS [Concomitant]
     Active Substance: APIXABAN
  7. MONTELUKAST [Concomitant]
     Active Substance: MONTELUKAST
  8. OMEPRAZOLE [Concomitant]
     Active Substance: OMEPRAZOLE
  9. GABAPENTIN [Concomitant]
     Active Substance: GABAPENTIN
  10. PREDNISONE [Concomitant]
     Active Substance: PREDNISONE
  11. TRAMADOL [Concomitant]
     Active Substance: TRAMADOL

REACTIONS (1)
  - Therapy interrupted [Unknown]

NARRATIVE: CASE EVENT DATE: 20241216
